FAERS Safety Report 8006170-0 (Version None)
Quarter: 2011Q4

REPORT INFORMATION
  Report Type: 
  Country: None (occurrence: None)
  Receive Date: 20111226
  Receipt Date: 20111222
  Transmission Date: 20120403
  Serious: Yes (Death, Hospitalization)
  Sender: FDA-Public Use
  Company Number: KR-BRISTOL-MYERS SQUIBB COMPANY-16202384

PATIENT
  Age: 67 Year
  Sex: Female
  Weight: 47 kg

DRUGS (31)
  1. ATENOLOL [Concomitant]
     Dates: start: 20110101, end: 20111004
  2. SEPTRA [Concomitant]
     Dates: start: 20110927, end: 20111008
  3. MEPERIDINE HCL [Concomitant]
     Dates: start: 20110928, end: 20110928
  4. VANCOMYCIN HYCHLORIDE [Concomitant]
     Dates: start: 20110930, end: 20111013
  5. QUETIAPINE FUMARATE [Concomitant]
     Dates: start: 20110927, end: 20110927
  6. MIDAZOLAM [Concomitant]
     Dates: start: 20110930, end: 20110930
  7. TAZOBACTAM [Concomitant]
     Dates: start: 20110930, end: 20111013
  8. DEXTROSE [Concomitant]
  9. AMINOPHYLLINE [Concomitant]
     Dates: start: 20110928, end: 20110930
  10. DOMPERIDONE [Concomitant]
     Dates: start: 20110907, end: 20110930
  11. TAMSULOSIN HCL [Concomitant]
     Dates: start: 20110831, end: 20110930
  12. ATROPINE [Concomitant]
     Dates: start: 20110928, end: 20110928
  13. ROCURONIUM BROMIDE [Concomitant]
     Dates: start: 20110930, end: 20110930
  14. BARIUM SULFATE [Concomitant]
     Dates: start: 20110101, end: 20110927
  15. RANITIDINE [Concomitant]
     Dates: start: 20110928, end: 20110928
  16. ACETAMINOPHEN [Concomitant]
     Dates: start: 20110930, end: 20110930
  17. SODIUM CHLORIDE [Concomitant]
     Dates: start: 20111001, end: 20111003
  18. ACETYLCYSTEINE [Concomitant]
     Dates: start: 20110907, end: 20110919
  19. HYDROCHLOROTHIAZIDE [Concomitant]
     Dates: start: 20110101, end: 20111004
  20. MOXIFLOXACIN [Concomitant]
     Dates: start: 20110928, end: 20110928
  21. ALBUTEROL SULFATE AUTOHALER [Concomitant]
  22. MEGESTROL ACETATE [Concomitant]
     Dates: start: 20110907
  23. BETHANECHOL CHLORIDE [Concomitant]
     Dates: start: 20110928, end: 20110930
  24. IPRATROPIUM BROMIDE [Concomitant]
  25. NICARDIPINE HCL [Concomitant]
     Dates: start: 20111001, end: 20111004
  26. INSULIN ASPART [Concomitant]
     Dates: start: 20111004, end: 20111017
  27. PACLITAXEL [Suspect]
     Indication: GASTRIC CANCER
     Dosage: PRIOR TO EVENT: 16SEP11.
     Route: 042
     Dates: start: 20110803, end: 20110916
  28. PREDNISOLONE [Concomitant]
     Dates: start: 20110927, end: 20111008
  29. VECURONIUM BROMIDE [Concomitant]
     Dates: start: 20110930, end: 20111004
  30. FUROSEMIDE [Concomitant]
  31. DOPAMINE HCL [Concomitant]
     Dates: start: 20111010, end: 20111010

REACTIONS (3)
  - ACUTE RESPIRATORY DISTRESS SYNDROME [None]
  - MULTI-ORGAN FAILURE [None]
  - PNEUMONITIS [None]
